FAERS Safety Report 6220370-1 (Version None)
Quarter: 2009Q2

REPORT INFORMATION
  Report Type: 
  Country: None (occurrence: None)
  Receive Date: 20090610
  Receipt Date: 20090529
  Transmission Date: 20091009
  Serious: Yes (Other)
  Sender: FDA-Public Use
  Company Number: FR-PFIZER-2009191314

PATIENT

DRUGS (2)
  1. SUNITINIB MALATE [Suspect]
     Indication: RENAL CELL CARCINOMA
  2. ZOLEDRONIC ACID [Suspect]
     Indication: HYPERCALCAEMIA
     Dosage: 4 MG, EVERY 3 WEEKS
     Route: 042

REACTIONS (1)
  - OSTEONECROSIS [None]
